FAERS Safety Report 5209308-3 (Version None)
Quarter: 2006Q4

REPORT INFORMATION
  Report Type: 
  Country: None (occurrence: None)
  Receive Date: 20061101
  Receipt Date: 20060814
  Transmission Date: 20070319
  Serious: No
  Sender: FDA-Public Use
  Company Number: SPV1-2006-00430

PATIENT
  Age: 85 Year
  Sex: Male

DRUGS (13)
  1. FOSRENOL [Suspect]
     Indication: HYPERPHOSPHATAEMIA
     Dosage: 750 MG, 3X/DAY: TID; SEE IMAGE
     Dates: start: 20060803
  2. OSCAL [Concomitant]
  3. FOLIC ACID [Concomitant]
  4. ENERVON C (THIAMINE HYDROCHLORIDE, RIBOFLAVIN, PYRIDOXINE HYDROCHLORID [Concomitant]
  5. ALLOPURINOL [Concomitant]
  6. SODIUM BICARBONATE IN PLASTIC CONTAINER [Concomitant]
  7. NATOPHEROL (TOCOPHEROL) [Concomitant]
  8. NEXIUM [Concomitant]
  9. MOTILIUM (LOPERAMIDE HYDROCHLORIDE) [Concomitant]
  10. CASODEX [Concomitant]
  11. ZEMPLAR [Concomitant]
  12. RECORMON (ERYTHROPOIETIN HUMAN) [Concomitant]
  13. VENOFER [Concomitant]

REACTIONS (1)
  - DIARRHOEA [None]
